FAERS Safety Report 4886258-3 (Version None)
Quarter: 2006Q1

REPORT INFORMATION
  Report Type: 
  Country: None (occurrence: None)
  Receive Date: 20060118
  Receipt Date: 20060105
  Transmission Date: 20060701
  Serious: Yes (Hospitalization, Other)
  Sender: FDA-Public Use
  Company Number: 2006004447

PATIENT
  Age: 78 Year
  Sex: Female
  Weight: 112 kg

DRUGS (8)
  1. LYRICA [Suspect]
     Indication: ILL-DEFINED DISORDER
     Dosage: 150 MG (150 MG, 1 IN 1 D); ORAL
     Route: 048
     Dates: start: 20051231
  2. COUMADIN [Suspect]
     Indication: ATRIAL FIBRILLATION
     Dosage: 5 MG (5 MG, 1 IN 1 D); ORAL
     Route: 048
     Dates: end: 20060101
  3. LASIX [Concomitant]
  4. LORTAB [Concomitant]
  5. DARVOCET [Concomitant]
  6. TOPROL-XL [Concomitant]
  7. PREDNISONE [Concomitant]
  8. FLEXERIL [Concomitant]

REACTIONS (4)
  - DIFFICULTY IN WALKING [None]
  - DRUG INTERACTION [None]
  - INTERNATIONAL NORMALISED RATIO INCREASED [None]
  - PAIN IN EXTREMITY [None]
